FAERS Safety Report 9321493 (Version 3)
Quarter: 2013Q3

REPORT INFORMATION
  Report Type: Spontaneous
  Country: US (occurrence: US)
  Receive Date: 20130531
  Receipt Date: 20130721
  Transmission Date: 20140515
  Serious: Yes (Other)
  Sender: FDA-Public Use
  Company Number: PHEH2013US011658

PATIENT
  Age: 68 Year
  Sex: Male

DRUGS (15)
  1. EXELON PATCH [Suspect]
     Indication: DEMENTIA
     Dosage: UNK UKN, QD
     Route: 062
  2. DIOVAN [Suspect]
     Dosage: 320 MG, QD
  3. CARBIDOPA/LEVODOPA TABLETS USP [Suspect]
     Dosage: UNK UKN, QID
  4. NITROGLYCERIN SANDOZ [Suspect]
     Dosage: 0.4 MG, UNK
  5. PRAVACHOL [Suspect]
     Dosage: 80 MG, QD
  6. GLUCOPHAGE [Suspect]
     Indication: DIABETES MELLITUS
     Dosage: 500 MG, BID
  7. PERCOCET [Suspect]
     Dosage: 1 DF, PRN (10/325 MG)
  8. IMDUR [Suspect]
     Dosage: UNK UKN, UNK
  9. ASPIRIN [Suspect]
     Dosage: UNK UKN, UNK
  10. NIACIN [Suspect]
     Dosage: UNK UKN, UNK
  11. FUROSEMIDE//FUROSEMIDE SODIUM [Concomitant]
     Dosage: 40 MG, UNK
  12. KLOR-CON [Concomitant]
     Dosage: UNK UKN, UNK
  13. PLAVIX [Concomitant]
     Dosage: 75 MG, UNK (MON, WED, FRI)
  14. METOLAZONE [Concomitant]
     Dosage: 5 MG, QD
  15. WARFARIN [Concomitant]
     Dosage: 5 MG, UNK

REACTIONS (6)
  - Parkinson^s disease [Unknown]
  - Dementia [Unknown]
  - Confusional state [Unknown]
  - Memory impairment [Unknown]
  - Drug ineffective [Unknown]
  - Erythema [Recovered/Resolved]
